FAERS Safety Report 6113492-7 (Version None)
Quarter: 2009Q1

REPORT INFORMATION
  Report Type: 
  Country: None (occurrence: None)
  Receive Date: 20090312
  Receipt Date: 20041124
  Transmission Date: 20090719
  Serious: No
  Sender: FDA-Public Use
  Company Number: US-ABBOTT-08P-163-0457837-00

PATIENT
  Age: 6 Year
  Sex: Male

DRUGS (1)
  1. DEPAKOTE [Suspect]
     Indication: EPILEPSY
     Dosage: 1200 MG. PER DAY

REACTIONS (1)
  - LOSS OF CONSCIOUSNESS [None]
